FAERS Safety Report 6690804-7 (Version None)
Quarter: 2010Q2

REPORT INFORMATION
  Report Type: 
  Country: None (occurrence: None)
  Receive Date: 20100421
  Receipt Date: 20100322
  Transmission Date: 20101027
  Serious: Yes (Death, Other)
  Sender: FDA-Public Use
  Company Number: US-BAXTER-2008BH011003

PATIENT
  Age: 59 Year
  Sex: Female

DRUGS (28)
  1. HEPARIN SODIUM INJECTION [Suspect]
     Indication: INDWELLING CATHETER MANAGEMENT
     Route: 042
     Dates: start: 20070828, end: 20071001
  2. HEPARIN SODIUM INJECTION [Suspect]
     Indication: DRUG USE FOR UNKNOWN INDICATION
     Route: 042
     Dates: start: 20070828, end: 20071001
  3. HEPARIN SODIUM INJECTION [Suspect]
     Route: 042
     Dates: start: 20070829, end: 20071001
  4. HEPARIN SODIUM INJECTION [Suspect]
     Route: 042
     Dates: start: 20070829, end: 20071001
  5. HEPARIN SODIUM INJECTION [Suspect]
     Route: 042
     Dates: start: 20070829, end: 20070929
  6. HEPARIN SODIUM INJECTION [Suspect]
     Route: 042
     Dates: start: 20070829, end: 20070929
  7. HEPARIN SODIUM INJECTION [Suspect]
     Route: 042
     Dates: start: 20070901
  8. HEPARIN SODIUM INJECTION [Suspect]
     Route: 042
     Dates: start: 20070901
  9. HEPARIN SODIUM INJECTION [Suspect]
     Route: 042
     Dates: start: 20070901
  10. HEPARIN SODIUM INJECTION [Suspect]
     Route: 042
     Dates: start: 20070901
  11. HEPARIN SODIUM INJECTION [Suspect]
     Route: 058
     Dates: start: 20070825, end: 20070829
  12. HEPARIN SODIUM INJECTION [Suspect]
     Route: 058
     Dates: start: 20070825, end: 20070829
  13. HEPARIN SODIUM INJECTION [Suspect]
     Route: 065
     Dates: start: 20070825, end: 20070829
  14. HEPARIN SODIUM INJECTION [Suspect]
     Route: 065
     Dates: start: 20070825, end: 20070829
  15. HEPARIN SODIUM 5,000 UNITS IN DEXTROSE 5% [Suspect]
     Indication: DRUG USE FOR UNKNOWN INDICATION
     Route: 042
     Dates: start: 20070901, end: 20070914
  16. TRAZODONE [Concomitant]
     Indication: DRUG USE FOR UNKNOWN INDICATION
     Route: 048
  17. FLEXERIL [Concomitant]
     Indication: DRUG USE FOR UNKNOWN INDICATION
     Route: 048
  18. ZOLOFT [Concomitant]
     Indication: DRUG USE FOR UNKNOWN INDICATION
     Route: 048
  19. DARVOCET [Concomitant]
     Indication: DRUG USE FOR UNKNOWN INDICATION
     Route: 048
  20. IBUPROFEN [Concomitant]
     Indication: DRUG USE FOR UNKNOWN INDICATION
     Route: 048
  21. METHOTREXATE [Concomitant]
     Indication: DRUG USE FOR UNKNOWN INDICATION
     Route: 048
  22. FOLIC ACID [Concomitant]
     Indication: DRUG USE FOR UNKNOWN INDICATION
     Route: 048
  23. PREDNISONE TAB [Concomitant]
     Indication: DRUG USE FOR UNKNOWN INDICATION
     Route: 048
  24. PANTOPRAZOLE [Concomitant]
     Indication: DRUG USE FOR UNKNOWN INDICATION
     Route: 042
  25. ATROVENT [Concomitant]
     Indication: DRUG USE FOR UNKNOWN INDICATION
     Route: 055
  26. LOVALBUTEROL [Concomitant]
     Indication: DRUG USE FOR UNKNOWN INDICATION
     Route: 055
  27. LOVENOX [Concomitant]
     Indication: DRUG USE FOR UNKNOWN INDICATION
     Route: 058
     Dates: start: 20070828, end: 20070901
  28. LOVENOX [Concomitant]
     Route: 058
     Dates: start: 20070917

REACTIONS (21)
  - CEREBRAL INFARCTION [None]
  - CYANOSIS [None]
  - HAEMATOCHEZIA [None]
  - HYPOTENSION [None]
  - INTERSTITIAL LUNG DISEASE [None]
  - JUGULAR VEIN THROMBOSIS [None]
  - LEG AMPUTATION [None]
  - MELAENA [None]
  - METABOLIC ACIDOSIS [None]
  - ORGANISING PNEUMONIA [None]
  - PERIPHERAL EMBOLISM [None]
  - PERIPHERAL ISCHAEMIA [None]
  - PLATELET COUNT DECREASED [None]
  - PULMONARY THROMBOSIS [None]
  - PULSE ABSENT [None]
  - RENAL FAILURE ACUTE [None]
  - RESPIRATORY DISTRESS [None]
  - RESPIRATORY FAILURE [None]
  - SEPSIS [None]
  - TACHYCARDIA [None]
  - TACHYPNOEA [None]
